FAERS Safety Report 6385050-0 (Version None)
Quarter: 2009Q4

REPORT INFORMATION
  Report Type: 
  Country: None (occurrence: None)
  Receive Date: 20091002
  Receipt Date: 20090922
  Transmission Date: 20100525
  Serious: No
  Sender: FDA-Public Use
  Company Number: US-BAYER-200928032NA

PATIENT
  Age: 25 Year
  Sex: Female
  Weight: 51 kg

DRUGS (3)
  1. MIRENA [Suspect]
     Indication: CONTRACEPTION
     Dosage: CONTINUOUS
     Route: 015
     Dates: start: 20070822, end: 20090719
  2. PROZAC [Concomitant]
     Indication: FATIGUE
     Dosage: TOTAL DAILY DOSE: 20 MG
     Route: 048
     Dates: start: 20080619, end: 20080807
  3. TRILEPTAL [Concomitant]
     Indication: BIPOLAR DISORDER
     Dosage: TOTAL DAILY DOSE: 300 MG
     Route: 048
     Dates: start: 20090201, end: 20090401

REACTIONS (2)
  - DEVICE EXPULSION [None]
  - PREGNANCY WITH CONTRACEPTIVE DEVICE [None]
